FAERS Safety Report 8330018-8 (Version None)
Quarter: 2012Q2

REPORT INFORMATION
  Report Type: 
  Country: None (occurrence: None)
  Receive Date: 20120502
  Receipt Date: 20120424
  Transmission Date: 20120825
  Serious: Yes (Other)
  Sender: FDA-Public Use
  Company Number: JP-JNJFOC-20120303057

PATIENT
  Age: 60 Year
  Sex: Female

DRUGS (9)
  1. SIMPONI [Suspect]
     Route: 058
     Dates: start: 20100312
  2. METHOTREXATE [Concomitant]
     Route: 048
     Dates: start: 20100810
  3. ALFAROL [Concomitant]
     Route: 048
  4. SIMPONI [Suspect]
     Indication: RHEUMATOID ARTHRITIS
     Route: 058
     Dates: start: 20120213
  5. FAMOTIDINE [Concomitant]
     Route: 048
  6. PREDNISOLONE [Concomitant]
     Route: 048
  7. FOLIAMIN [Concomitant]
     Route: 048
  8. LOXONIN [Concomitant]
     Route: 048
  9. SIMPONI [Suspect]
     Route: 058
     Dates: start: 20120409

REACTIONS (1)
  - RETINAL HAEMORRHAGE [None]
